FAERS Safety Report 11857444 (Version 1)
Quarter: 2015Q4

REPORT INFORMATION
  Report Type: Spontaneous
  Country: US (occurrence: US)
  Receive Date: 20151221
  Receipt Date: 20151221
  Transmission Date: 20160305
  Serious: Yes (Other)
  Sender: FDA-Public Use
  Company Number: US-PFIZER INC-2015450735

PATIENT
  Sex: Male

DRUGS (5)
  1. CYMBALTA [Suspect]
     Active Substance: DULOXETINE HYDROCHLORIDE
     Indication: EPIDURAL ANAESTHESIA
     Dosage: 30 MG, DAILY
  2. CYMBALTA [Suspect]
     Active Substance: DULOXETINE HYDROCHLORIDE
     Indication: HYPOAESTHESIA
     Dosage: 60 MG, DAILY
  3. SINGULAIR [Suspect]
     Active Substance: MONTELUKAST SODIUM
     Dosage: 30 MG, UNK
  4. NEURONTIN [Suspect]
     Active Substance: GABAPENTIN
  5. VICODIN [Suspect]
     Active Substance: ACETAMINOPHEN\HYDROCODONE BITARTRATE
     Indication: PAIN
     Dosage: 2 DF, 2X/DAY (TWO IN THE MORNING AND TWO AT NIGHT)
     Dates: start: 2006

REACTIONS (2)
  - Depressed level of consciousness [Unknown]
  - Hypersomnia [Unknown]
